FAERS Safety Report 19078652 (Version 1)
Quarter: 2021Q1

REPORT INFORMATION
  Report Type: Spontaneous
  Country: US (occurrence: US)
  Receive Date: 20210331
  Receipt Date: 20210331
  Transmission Date: 20210420
  Serious: No
  Sender: FDA-Public Use
  Company Number: US-TEVA-2021-US-1896312

PATIENT
  Age: 80 Year
  Sex: Female

DRUGS (2)
  1. CLONAZEPAM TEVA [Suspect]
     Active Substance: CLONAZEPAM
     Dosage: 0.5 MG TO TAKE AT NIGHT
     Route: 065
  2. CLONAZEPAM TEVA [Suspect]
     Active Substance: CLONAZEPAM
     Dosage: 0.5 MG TO TAKE AT NIGHT
     Route: 065

REACTIONS (5)
  - Feeling abnormal [Not Recovered/Not Resolved]
  - Restlessness [Not Recovered/Not Resolved]
  - Insomnia [Not Recovered/Not Resolved]
  - Dizziness [Not Recovered/Not Resolved]
  - Anxiety [Not Recovered/Not Resolved]
